FAERS Safety Report 18282970 (Version 10)
Quarter: 2025Q2

REPORT INFORMATION
  Report Type: Report from Study
  Country: US (occurrence: US)
  Receive Date: 20200918
  Receipt Date: 20250526
  Transmission Date: 20250716
  Serious: Yes (Hospitalization, Other)
  Sender: TAKEDA
  Company Number: US-SHIRE-US202030309

PATIENT
  Sex: Female
  Weight: 47.392 kg

DRUGS (25)
  1. HUMAN IMMUNOGLOBULIN G [Suspect]
     Active Substance: HUMAN IMMUNOGLOBULIN G
     Indication: Immunodeficiency common variable
     Dosage: 10 GRAM, 1/WEEK
     Dates: start: 20160626
  2. HUMAN IMMUNOGLOBULIN G [Suspect]
     Active Substance: HUMAN IMMUNOGLOBULIN G
     Dosage: 8 GRAM, 1/WEEK
     Dates: start: 20170312
  3. HUMAN IMMUNOGLOBULIN G [Suspect]
     Active Substance: HUMAN IMMUNOGLOBULIN G
     Dosage: 8 GRAM, 1/WEEK
  4. TEGRETOL [Concomitant]
     Active Substance: CARBAMAZEPINE
  5. QVAR [Concomitant]
     Active Substance: BECLOMETHASONE DIPROPIONATE
  6. AZATHIOPRINE [Concomitant]
     Active Substance: AZATHIOPRINE
  7. UNSPECIFIED INGREDIENT [Concomitant]
     Active Substance: UNSPECIFIED INGREDIENT
  8. OMEGA-3 ACIDS [Concomitant]
     Active Substance: OMEGA-3 FATTY ACIDS
  9. CEFDINIR [Concomitant]
     Active Substance: CEFDINIR
  10. CALCIUM CARBONATE\MAGNESIUM CARBONATE [Concomitant]
     Active Substance: CALCIUM CARBONATE\MAGNESIUM CARBONATE
  11. VITAMIN C [Concomitant]
     Active Substance: ASCORBIC ACID
  12. VITAMIN D3 [Concomitant]
     Active Substance: CHOLECALCIFEROL
  13. PROAIR HFA [Concomitant]
     Active Substance: ALBUTEROL SULFATE
  14. ACETAMINOPHEN [Concomitant]
     Active Substance: ACETAMINOPHEN
  15. DIPHENHYDRAMINE [Concomitant]
     Active Substance: DIPHENHYDRAMINE
  16. EPINEPHRINE [Concomitant]
     Active Substance: EPINEPHRINE
  17. Lmx [Concomitant]
  18. CARVEDILOL [Concomitant]
     Active Substance: CARVEDILOL
  19. TYLENOL [Concomitant]
     Active Substance: ACETAMINOPHEN
  20. MAGNESIUM [Concomitant]
     Active Substance: MAGNESIUM
  21. CALCIUM [Concomitant]
     Active Substance: CALCIUM
  22. LACTASE [Concomitant]
     Active Substance: LACTASE
  23. PROAIR HFA [Concomitant]
     Active Substance: ALBUTEROL SULFATE
  24. DIPHENHYDRAMINE HYDROCHLORIDE [Concomitant]
     Active Substance: DIPHENHYDRAMINE HYDROCHLORIDE
  25. Omega [Concomitant]

REACTIONS (10)
  - Rectal abscess [Unknown]
  - Hip fracture [Unknown]
  - Fall [Unknown]
  - Overdose [Unknown]
  - Subcutaneous abscess [Unknown]
  - Infection [Unknown]
  - Skin infection [Recovering/Resolving]
  - Bronchitis [Unknown]
  - Product dose omission issue [Unknown]
  - Pyrexia [Recovered/Resolved]
